FAERS Safety Report 4918700-3 (Version None)
Quarter: 2006Q1

REPORT INFORMATION
  Report Type: 
  Country: None (occurrence: None)
  Receive Date: 20060222
  Receipt Date: 20060214
  Transmission Date: 20060701
  Serious: Yes (Other)
  Sender: FDA-Public Use
  Company Number: PHEH2006US02149

PATIENT
  Sex: Female

DRUGS (4)
  1. ENABLEX [Suspect]
     Indication: HYPERTONIC BLADDER
     Dosage: 7.5 MG, QD
     Dates: start: 20060210
  2. LEXAPRO [Concomitant]
  3. ZYPREXA [Concomitant]
  4. VICODIN [Concomitant]

REACTIONS (1)
  - HEARING IMPAIRED [None]
